FAERS Safety Report 9455309 (Version 3)
Quarter: 2014Q1

REPORT INFORMATION
  Report Type: Spontaneous
  Country: US (occurrence: US)
  Receive Date: 20130813
  Receipt Date: 20140226
  Transmission Date: 20141002
  Serious: Yes (Congenital Anomaly, Other)
  Sender: FDA-Public Use
  Company Number: US-JNJFOC-20130802211

PATIENT
  Sex: 0

DRUGS (11)
  1. DARUNAVIR [Suspect]
     Indication: PRODUCT USED FOR UNKNOWN INDICATION
     Route: 064
  2. INTELENCE [Suspect]
     Indication: PRODUCT USED FOR UNKNOWN INDICATION
     Route: 064
  3. INTELENCE [Suspect]
     Indication: PRODUCT USED FOR UNKNOWN INDICATION
     Route: 064
  4. RALTEGRAVIR [Suspect]
     Indication: PRODUCT USED FOR UNKNOWN INDICATION
     Route: 064
  5. RITONAVIR [Suspect]
     Indication: PRODUCT USED FOR UNKNOWN INDICATION
     Route: 064
  6. RITONAVIR [Suspect]
     Indication: PRODUCT USED FOR UNKNOWN INDICATION
     Route: 064
  7. TRUVADA [Suspect]
     Indication: PRODUCT USED FOR UNKNOWN INDICATION
     Route: 064
  8. APTIVUS [Suspect]
     Indication: PRODUCT USED FOR UNKNOWN INDICATION
     Route: 064
  9. ZIDOVUDINE [Suspect]
     Indication: PRODUCT USED FOR UNKNOWN INDICATION
     Route: 064
  10. NOVO RAPID [Suspect]
     Indication: GESTATIONAL DIABETES
     Route: 064
  11. PREDNISOLONE [Suspect]
     Indication: PRODUCT USED FOR UNKNOWN INDICATION
     Route: 064

REACTIONS (16)
  - Umbilical cord abnormality [Recovered/Resolved with Sequelae]
  - Lipodystrophy acquired [Not Recovered/Not Resolved]
  - Genitalia external ambiguous [Recovered/Resolved with Sequelae]
  - Exomphalos [Recovered/Resolved with Sequelae]
  - Sepsis [Recovered/Resolved]
  - Meningomyelocele [Recovered/Resolved with Sequelae]
  - Meconium stain [Recovered/Resolved with Sequelae]
  - Gastrointestinal disorder congenital [Recovered/Resolved with Sequelae]
  - Erythema [Recovered/Resolved]
  - Congenital musculoskeletal anomaly [Recovered/Resolved with Sequelae]
  - Cloacal exstrophy [Recovered/Resolved with Sequelae]
  - Caudal regression syndrome [Recovered/Resolved with Sequelae]
  - Bladder agenesis [Recovered/Resolved with Sequelae]
  - Blood iron decreased [Recovered/Resolved]
  - Tethered cord syndrome [Recovered/Resolved with Sequelae]
  - Foetal exposure during pregnancy [Unknown]
